FAERS Safety Report 9614251 (Version 1)
Quarter: 2013Q4

REPORT INFORMATION
  Report Type: Spontaneous
  Country: US (occurrence: US)
  Receive Date: 20131011
  Receipt Date: 20131011
  Transmission Date: 20140711
  Serious: Yes (Hospitalization)
  Sender: FDA-Public Use
  Company Number: US-BRISTOL-MYERS SQUIBB COMPANY-19519008

PATIENT
  Age: 75 Year
  Sex: Male
  Weight: 68.03 kg

DRUGS (2)
  1. COUMADIN [Suspect]
  2. LYRICA [Suspect]
     Indication: FIBROMYALGIA
     Dosage: CAPS
     Route: 048

REACTIONS (4)
  - Local swelling [Unknown]
  - Haemoglobin decreased [Unknown]
  - Thrombosis [Unknown]
  - Lethargy [Unknown]
